FAERS Safety Report 8082735-5 (Version None)
Quarter: 2012Q1

REPORT INFORMATION
  Report Type: 
  Country: None (occurrence: None)
  Receive Date: 20120127
  Receipt Date: 20110301
  Transmission Date: 20120608
  Serious: No
  Sender: FDA-Public Use
  Company Number: US-ABBOTT-11P-163-0708336-00

PATIENT
  Age: 77 Year
  Sex: Male

DRUGS (11)
  1. PANTOPRAZOLE [Concomitant]
     Indication: PRODUCT USED FOR UNKNOWN INDICATION
  2. PREDNISONE TAB [Concomitant]
     Indication: RHEUMATOID ARTHRITIS
     Dosage: DOSE VARIES
  3. METHOTREXATE [Concomitant]
     Indication: RHEUMATOID ARTHRITIS
  4. FOLIC ACID [Concomitant]
     Indication: VITAMIN SUPPLEMENTATION
  5. HUMIRA [Suspect]
     Indication: RHEUMATOID ARTHRITIS
     Dates: start: 20110101
  6. PRAVASTATIN [Concomitant]
     Indication: BLOOD PRESSURE
  7. LISINOPRIL [Concomitant]
     Indication: BLOOD PRESSURE
  8. PLAVIX [Concomitant]
     Indication: ANTICOAGULANT THERAPY
  9. METOPROLOL TARTRATE [Concomitant]
     Indication: PRODUCT USED FOR UNKNOWN INDICATION
  10. CARDIZEM [Concomitant]
     Indication: ARRHYTHMIA
  11. FLECAINIDE ACETATE [Concomitant]
     Indication: ARRHYTHMIA

REACTIONS (1)
  - FATIGUE [None]
